FAERS Safety Report 23424440 (Version 1)
Quarter: 2024Q1

REPORT INFORMATION
  Report Type: Spontaneous
  Country: CN (occurrence: CN)
  Receive Date: 20240120
  Receipt Date: 20240120
  Transmission Date: 20240410
  Serious: Yes (Life-Threatening, Hospitalization, Other)
  Sender: FDA-Public Use
  Company Number: CN-MACLEODS PHARMACEUTICALS US LTD-MAC2024045315

PATIENT

DRUGS (3)
  1. OLMESARTAN [Suspect]
     Active Substance: OLMESARTAN
     Indication: Product used for unknown indication
     Dosage: 14 DOSAGE FORM, QD (14 TABLETS)
     Route: 065
  2. NIFEDIPINE [Suspect]
     Active Substance: NIFEDIPINE
     Indication: Product used for unknown indication
     Dosage: 60 DOSAGE FORM, QD (60 TABLETS)
     Route: 065
  3. CLONIDINE [Suspect]
     Active Substance: CLONIDINE
     Indication: Product used for unknown indication
     Dosage: 50 DOSAGE FORM, QD (50 TABLETS)
     Route: 065

REACTIONS (5)
  - Gastrointestinal necrosis [Unknown]
  - Hypoperfusion [Unknown]
  - Gastrointestinal ischaemia [Unknown]
  - Hypotension [Unknown]
  - Intentional overdose [Unknown]
